FAERS Safety Report 9999161 (Version 1)
Quarter: 2014Q1

REPORT INFORMATION
  Report Type: Spontaneous
  Country: US (occurrence: None)
  Receive Date: 20140311
  Receipt Date: 20140311
  Transmission Date: 20141002
  Serious: Yes (Other)
  Sender: FDA-Public Use
  Company Number: None

PATIENT
  Age: 60 Year
  Sex: Male
  Weight: 79.38 kg

DRUGS (1)
  1. HOMATROPINE HYDROBROMIDE [Suspect]
     Dosage: EYE DROPS
     Dates: start: 20140206, end: 20140226

REACTIONS (1)
  - Neuropathy peripheral [None]
